FAERS Safety Report 9137415 (Version 1)
Quarter: 2013Q1

REPORT INFORMATION
  Report Type: Spontaneous
  Country: CA (occurrence: CA)
  Receive Date: 20130304
  Receipt Date: 20130304
  Transmission Date: 20140127
  Serious: Yes (Hospitalization)
  Sender: FDA-Public Use
  Company Number: CA-ASTRAZENECA-2013SE12449

PATIENT
  Age: 70 Year
  Sex: Male
  Weight: 50.3 kg

DRUGS (9)
  1. BRILINTA [Suspect]
     Route: 048
  2. ASA [Concomitant]
  3. CANDESARTAN CILEXETIL [Concomitant]
  4. COENZYME Q10 [Concomitant]
  5. FOLIC ACID [Concomitant]
  6. KRILL OIL [Concomitant]
  7. MULTIVITAMINES [Concomitant]
  8. VITAMIN C [Concomitant]
  9. VITAMIN D [Concomitant]

REACTIONS (5)
  - Syncope [Recovered/Resolved]
  - Asthenia [Recovered/Resolved]
  - Dizziness [Recovered/Resolved]
  - Nausea [Recovered/Resolved]
  - Pruritus [Recovered/Resolved]
